FAERS Safety Report 8447998-2 (Version None)
Quarter: 2012Q2

REPORT INFORMATION
  Report Type: 
  Country: None (occurrence: None)
  Receive Date: 20120619
  Receipt Date: 20120613
  Transmission Date: 20120825
  Serious: Yes (Hospitalization, Other)
  Sender: FDA-Public Use
  Company Number: US-PFIZER INC-2012143629

PATIENT
  Sex: Female
  Weight: 67.12 kg

DRUGS (7)
  1. VESICARE [Concomitant]
     Indication: INCONTINENCE
     Dosage: UNK
  2. ELAVIL [Concomitant]
     Indication: SLEEP DISORDER
     Dosage: UNK
     Dates: start: 20120101
  3. LYRICA [Suspect]
     Indication: HERPES ZOSTER
     Dosage: 300 MG,DAILY
  4. NEURONTIN [Suspect]
     Dosage: UNK
  5. BCG ORGANISMS-METHANOL EXTRACTION RESIDUE [Concomitant]
     Indication: TUBERCULOSIS BLADDER
     Dosage: UNK
  6. QUININE HYDROCHLORIDE [Concomitant]
     Indication: SYSTEMIC LUPUS ERYTHEMATOSUS
     Dosage: 0.9 MG, UNK
  7. CRESTOR [Concomitant]
     Dosage: UNK

REACTIONS (11)
  - DYSSTASIA [None]
  - DYSPNOEA [None]
  - INCORRECT DOSE ADMINISTERED [None]
  - PAIN [None]
  - LOSS OF CONSCIOUSNESS [None]
  - GAIT DISTURBANCE [None]
  - TOOTH DISORDER [None]
  - RASH [None]
  - WOUND [None]
  - NERVE INJURY [None]
  - PRURITUS [None]
